FAERS Safety Report 5737755-X (Version None)
Quarter: 2008Q2

REPORT INFORMATION
  Report Type: 
  Country: None (occurrence: None)
  Receive Date: 20080513
  Receipt Date: 20080513
  Transmission Date: 20081010
  Serious: Yes (Life-Threatening)
  Sender: FDA-Public Use
  Company Number: None

PATIENT
  Age: 36 Year
  Sex: Male
  Weight: 102.5129 kg

DRUGS (2)
  1. ZOLPIDEM [Suspect]
     Indication: INSOMNIA
     Dosage: 1 TABLET 10 MG AS NEEDED PO
     Route: 048
     Dates: start: 20070709, end: 20070723
  2. ZOLPIDEM [Suspect]
     Indication: POST PROCEDURAL COMPLICATION
     Dosage: 1 TABLET 10 MG AS NEEDED PO
     Route: 048
     Dates: start: 20070709, end: 20070723

REACTIONS (6)
  - ABNORMAL SLEEP-RELATED EVENT [None]
  - AMNESIA [None]
  - HALLUCINATION, AUDITORY [None]
  - LOSS OF CONSCIOUSNESS [None]
  - ROAD TRAFFIC ACCIDENT [None]
  - SOMNAMBULISM [None]
